FAERS Safety Report 9071725 (Version 4)
Quarter: 2020Q3

REPORT INFORMATION
  Report Type: Report from Study
  Country: US (occurrence: US)
  Receive Date: 20130129
  Receipt Date: 20130228
  Transmission Date: 20201104
  Serious: Yes (Hospitalization)
  Sender: FDA-Public Use
  Company Number: US-ROCHE-1179687

PATIENT
  Age: 79 Year
  Sex: Female
  Weight: 66.68 kg

DRUGS (13)
  1. ALPRAZOLAM. [Concomitant]
     Active Substance: ALPRAZOLAM
     Indication: DEPRESSION
  2. ASCORBIC ACID. [Concomitant]
     Active Substance: ASCORBIC ACID
     Route: 065
  3. ESOMEPRAZOLE. [Concomitant]
     Active Substance: ESOMEPRAZOLE MAGNESIUM
     Route: 065
     Dates: start: 2012
  4. OXALIPLATIN. [Suspect]
     Active Substance: OXALIPLATIN
     Indication: COLON CANCER
     Dosage: LAST DOSE PRIOR TO SAE: 08/JAN/2013
     Route: 042
     Dates: start: 20120918
  5. FEXOFENADINE [Concomitant]
     Active Substance: FEXOFENADINE HYDROCHLORIDE
     Indication: SEASONAL ALLERGY
     Route: 065
     Dates: start: 201209
  6. 5?FLUOROURACIL [Suspect]
     Active Substance: FLUOROURACIL
     Indication: COLON CANCER
     Dosage: LAST DOSE PRIOR TO SAE: 08/JAN/2013
     Route: 042
     Dates: start: 20120918
  7. LEUCOVORIN. [Suspect]
     Active Substance: LEUCOVORIN
     Indication: COLON CANCER
     Dosage: LAST DOSE PRIOR TO SAE: 08/JAN/2013
     Route: 042
     Dates: start: 20120918
  8. BEVACIZUMAB. [Suspect]
     Active Substance: BEVACIZUMAB
     Indication: COLON CANCER
     Dosage: LAST DOSE PRIOR TO SAE: 08/JAN/2013
     Route: 042
     Dates: start: 20120918
  9. ESCITALOPRAM [Concomitant]
     Active Substance: ESCITALOPRAM OXALATE
     Indication: ANXIETY
     Route: 065
     Dates: start: 2012
  10. ESCITALOPRAM [Concomitant]
     Active Substance: ESCITALOPRAM OXALATE
     Indication: DEPRESSION
  11. ALPRAZOLAM. [Concomitant]
     Active Substance: ALPRAZOLAM
     Indication: ANXIETY
     Route: 065
     Dates: start: 2012
  12. CHOLECALCIFEROL [Concomitant]
     Active Substance: CHOLECALCIFEROL
     Dosage: DOSE:50 KU
     Route: 065
     Dates: start: 201209
  13. ONARTUZUMAB. [Suspect]
     Active Substance: ONARTUZUMAB
     Indication: COLON CANCER
     Dosage: LAST DOSE PRIOR TO SAE: 08/JAN/2013; LAST DOSE PRIOR TO SAE:660 MG
     Route: 042
     Dates: start: 20120918, end: 20130108

REACTIONS (3)
  - Encephalopathy [Not Recovered/Not Resolved]
  - Syncope [Recovered/Resolved]
  - Myocardial infarction [Recovered/Resolved with Sequelae]

NARRATIVE: CASE EVENT DATE: 20130113
